FAERS Safety Report 9899384 (Version 1)
Quarter: 2014Q1

REPORT INFORMATION
  Report Type: Spontaneous
  Country: US (occurrence: US)
  Receive Date: 20140214
  Receipt Date: 20140214
  Transmission Date: 20141002
  Serious: Yes (Other)
  Sender: FDA-Public Use
  Company Number: US-LUNDBECK-DKLU1097388

PATIENT
  Age: 18 Year
  Sex: Male

DRUGS (1)
  1. ONFI [Suspect]
     Indication: PRODUCT USED FOR UNKNOWN INDICATION

REACTIONS (3)
  - Depressed level of consciousness [Unknown]
  - Pneumonia [Unknown]
  - Body temperature decreased [Unknown]
